FAERS Safety Report 20781821 (Version 1)
Quarter: 2022Q2

REPORT INFORMATION
  Report Type: Spontaneous
  Country: US (occurrence: US)
  Receive Date: 20220504
  Receipt Date: 20220504
  Transmission Date: 20220721
  Serious: Yes (Other)
  Sender: FDA-Public Use
  Company Number: US-BRISTOL-MYERS SQUIBB COMPANY-2022-028241

PATIENT
  Age: 5 Year
  Sex: Male

DRUGS (1)
  1. THALOMID [Suspect]
     Active Substance: THALIDOMIDE
     Indication: Brain neoplasm
     Dosage: 1 CAPSULE OD FOR 1 WEEK, 2 CAPSULE OD FOR 1 WEEK. 3 CAPSULE OD FOR 1 WEEK, 4 CAPSULE OD FOR 1 WEEK
     Route: 048
     Dates: start: 202204

REACTIONS (4)
  - Fatigue [Recovered/Resolved]
  - Pneumonia [Recovered/Resolved]
  - Intentional product use issue [Unknown]
  - Off label use [Unknown]
